FAERS Safety Report 7826773-3 (Version None)
Quarter: 2011Q4

REPORT INFORMATION
  Report Type: 
  Country: None (occurrence: None)
  Receive Date: 20111020
  Receipt Date: 20111007
  Transmission Date: 20120403
  Serious: Yes (Hospitalization, Other)
  Sender: FDA-Public Use
  Company Number: US-BAYER-201029924NA

PATIENT
  Age: 19 Year
  Sex: Female
  Weight: 77.098 kg

DRUGS (6)
  1. YAZ [Suspect]
     Indication: CONTRACEPTION
     Dosage: UNK
     Dates: start: 20060101, end: 20090101
  2. YASMIN [Suspect]
     Indication: CONTRACEPTION
     Dosage: UNK
     Dates: start: 20060101, end: 20080101
  3. METFORMIN HCL [Concomitant]
     Indication: PRODUCT USED FOR UNKNOWN INDICATION
  4. GLUCOPHAGE [Concomitant]
     Indication: PRODUCT USED FOR UNKNOWN INDICATION
  5. YASMIN [Suspect]
     Indication: POLYCYSTIC OVARIES
  6. YAZ [Suspect]
     Indication: POLYCYSTIC OVARIES

REACTIONS (6)
  - CHOLECYSTITIS [None]
  - ANXIETY [None]
  - ORGAN FAILURE [None]
  - PAIN [None]
  - INJURY [None]
  - GALLBLADDER NON-FUNCTIONING [None]
